FAERS Safety Report 11458193 (Version 2)
Quarter: 2015Q4

REPORT INFORMATION
  Report Type: Report from Study
  Country: US (occurrence: US)
  Receive Date: 20150904
  Receipt Date: 20151001
  Transmission Date: 20160304
  Serious: Yes (Hospitalization, Other)
  Sender: FDA-Public Use
  Company Number: US-AMGEN-USASL2015089577

PATIENT
  Age: 64 Year
  Sex: Female

DRUGS (1)
  1. NPLATE [Suspect]
     Active Substance: ROMIPLOSTIM
     Indication: IMMUNE THROMBOCYTOPENIC PURPURA
     Dosage: UNK
     Route: 065
     Dates: start: 20091105

REACTIONS (15)
  - Ulnar tunnel syndrome [Unknown]
  - Cyst [Unknown]
  - Dizziness [Unknown]
  - Skin hypertrophy [Unknown]
  - Arthralgia [Unknown]
  - Post procedural haematoma [Unknown]
  - Transient ischaemic attack [Unknown]
  - Insomnia [Unknown]
  - Abdominal pain [Unknown]
  - Dyspepsia [Unknown]
  - Negativism [Unknown]
  - Myocardial infarction [Unknown]
  - Dysphagia [Unknown]
  - Peripheral swelling [Not Recovered/Not Resolved]
  - Tenderness [Unknown]

NARRATIVE: CASE EVENT DATE: 2009
